FAERS Safety Report 7913878-1 (Version None)
Quarter: 2011Q4

REPORT INFORMATION
  Report Type: 
  Country: None (occurrence: None)
  Receive Date: 20111115
  Receipt Date: 20111110
  Transmission Date: 20120403
  Serious: Yes (Other)
  Sender: FDA-Public Use
  Company Number: PE-PFIZER INC-2011276892

PATIENT
  Sex: Female

DRUGS (1)
  1. UNASYN [Suspect]
     Indication: ANTIBIOTIC PROPHYLAXIS
     Dosage: SINGLE DOSE
     Route: 058

REACTIONS (1)
  - SKIN NECROSIS [None]
